FAERS Safety Report 6752074-0 (Version None)
Quarter: 2010Q2

REPORT INFORMATION
  Report Type: 
  Country: None (occurrence: None)
  Receive Date: 20100602
  Receipt Date: 20100519
  Transmission Date: 20101027
  Serious: Yes (Other)
  Sender: FDA-Public Use
  Company Number: US-ELI_LILLY_AND_COMPANY-US201004000140

PATIENT
  Sex: Female
  Weight: 65.76 kg

DRUGS (1)
  1. EVISTA [Suspect]
     Dosage: 60 MG, DAILY (1/D)
     Route: 048
     Dates: start: 20070101, end: 20100101

REACTIONS (2)
  - BREAST CANCER IN SITU [None]
  - FIBROCYSTIC BREAST DISEASE [None]
